FAERS Safety Report 9178031 (Version 2)
Quarter: 2013Q1

REPORT INFORMATION
  Report Type: Report from Study
  Country: US (occurrence: US)
  Receive Date: 20130321
  Receipt Date: 20130329
  Transmission Date: 20140127
  Serious: Yes (Other)
  Sender: FDA-Public Use
  Company Number: US-JNJFOC-20130311021

PATIENT
  Age: 14 Year
  Sex: Female

DRUGS (2)
  1. NUCYNTA ER [Suspect]
     Indication: SUICIDE ATTEMPT
     Route: 048
     Dates: start: 20120917
  2. SSRI [Concomitant]
     Indication: DEPRESSION
     Route: 065

REACTIONS (4)
  - Depressed mood [Unknown]
  - Flat affect [Unknown]
  - Intentional drug misuse [Unknown]
  - Suicide attempt [Unknown]
